FAERS Safety Report 14271059 (Version 2)
Quarter: 2018Q3

REPORT INFORMATION
  Report Type: Spontaneous
  Country: JP (occurrence: JP)
  Receive Date: 20171211
  Receipt Date: 20180809
  Transmission Date: 20181010
  Serious: Yes (Life-Threatening, Other)
  Sender: FDA-Public Use
  Company Number: JP-OTSUKA-JP-2012-17224

PATIENT
  Age: 0 Day
  Sex: Male
  Weight: 3.02 kg

DRUGS (2)
  1. ABILIFY [Suspect]
     Active Substance: ARIPIPRAZOLE
     Indication: PRODUCT USED FOR UNKNOWN INDICATION
     Dosage: 3 MG, QD
     Route: 064
     Dates: start: 20120613, end: 201212
  2. ABILIFY [Suspect]
     Active Substance: ARIPIPRAZOLE
     Dosage: 6 MG, QD
     Route: 064
     Dates: end: 20120612

REACTIONS (2)
  - Foetal exposure during pregnancy [Unknown]
  - Foetal distress syndrome [Recovered/Resolved]

NARRATIVE: CASE EVENT DATE: 20121214
